FAERS Safety Report 8251427-1 (Version None)
Quarter: 2012Q1

REPORT INFORMATION
  Report Type: 
  Country: None (occurrence: None)
  Receive Date: 20120328
  Receipt Date: 20120326
  Transmission Date: 20120608
  Serious: Yes (Death)
  Sender: FDA-Public Use
  Company Number: ADR-2011-10891

PATIENT
  Age: 44 Year
  Sex: Male

DRUGS (5)
  1. DROPERIDOL [Concomitant]
  2. LIORESAL [Suspect]
     Indication: MUSCLE SPASTICITY
     Dosage: 232.75 MCG-186.45 MCG,
     Route: 037
  3. BUPIVICAINE [Concomitant]
  4. CLONIDINE [Concomitant]
  5. DILAUDID [Concomitant]

REACTIONS (1)
  - DEATH [None]
